FAERS Safety Report 5814409-2 (Version None)
Quarter: 2008Q3

REPORT INFORMATION
  Report Type: 
  Country: None (occurrence: None)
  Receive Date: 20080718
  Receipt Date: 20080708
  Transmission Date: 20090109
  Serious: Yes (Hospitalization)
  Sender: FDA-Public Use
  Company Number: JP-JNJFOC-20080702102

PATIENT
  Age: 82 Year
  Sex: Female

DRUGS (5)
  1. ITRIZOLE [Suspect]
     Indication: DRUG USE FOR UNKNOWN INDICATION
     Dosage: PULSE THERAPY
     Route: 048
  2. LEVOTHYROXINE SODIUM [Concomitant]
     Route: 048
  3. DIOVAN [Concomitant]
     Route: 048
  4. ADALAT [Concomitant]
     Route: 048
  5. MAGMITT [Concomitant]
     Route: 048

REACTIONS (2)
  - HYPOKALAEMIA [None]
  - ILEUS [None]
